FAERS Safety Report 8209338-3 (Version None)
Quarter: 2012Q1

REPORT INFORMATION
  Report Type: 
  Country: None (occurrence: None)
  Receive Date: 20120314
  Receipt Date: 20120312
  Transmission Date: 20120608
  Serious: No
  Sender: FDA-Public Use
  Company Number: US-TEVA-327650USA

PATIENT
  Sex: Female
  Weight: 58.112 kg

DRUGS (1)
  1. COPAXONE [Suspect]
     Indication: MULTIPLE SCLEROSIS
     Route: 058
     Dates: start: 20120303, end: 20120306

REACTIONS (2)
  - HEADACHE [None]
  - BLOOD PRESSURE SYSTOLIC INCREASED [None]
